FAERS Safety Report 8045266-4 (Version None)
Quarter: 2012Q1

REPORT INFORMATION
  Report Type: 
  Country: None (occurrence: None)
  Receive Date: 20120113
  Receipt Date: 20120109
  Transmission Date: 20120608
  Serious: Yes (Hospitalization, Other)
  Sender: FDA-Public Use
  Company Number: US-PFIZER INC-2012007061

PATIENT
  Age: 32 Year
  Sex: Male

DRUGS (1)
  1. LYRICA [Suspect]
     Dosage: UNK

REACTIONS (4)
  - CHEST PAIN [None]
  - FIBROMYALGIA [None]
  - IMPAIRED WORK ABILITY [None]
  - URINARY INCONTINENCE [None]
